FAERS Safety Report 14598878 (Version 1)
Quarter: 2018Q1

REPORT INFORMATION
  Report Type: Spontaneous
  Country: US (occurrence: US)
  Receive Date: 20180302
  Receipt Date: 20180302
  Transmission Date: 20180509
  Serious: Yes (Life-Threatening, Hospitalization)
  Sender: FDA-Public Use
  Company Number: None

PATIENT
  Age: 61 Year
  Sex: Male
  Weight: 76.5 kg

DRUGS (26)
  1. BENADRYL [Concomitant]
     Active Substance: DIPHENHYDRAMINE HYDROCHLORIDE
  2. OLEIC ACID [Concomitant]
     Active Substance: OLEIC ACID
  3. COMPAZINE [Concomitant]
     Active Substance: PROCHLORPERAZINE MALEATE
  4. CALCIUM CITRATE [Concomitant]
     Active Substance: CALCIUM CITRATE
  5. VITAMIN D3 [Concomitant]
     Active Substance: CHOLECALCIFEROL
  6. ZOFRAN [Concomitant]
     Active Substance: ONDANSETRON HYDROCHLORIDE
  7. TUMERIC [Concomitant]
     Active Substance: HERBALS\TURMERIC
  8. EICOSAPENTAENOIC ACID [Concomitant]
     Active Substance: ICOSAPENT
  9. SAW PALMETTO [Concomitant]
     Active Substance: HERBALS\SAW PALMETTO
  10. HEPARIN FLUSH [Concomitant]
     Active Substance: HEPARIN SODIUM
  11. LARTRUVO [Concomitant]
     Active Substance: OLARATUMAB
  12. OMEGA 3 [Concomitant]
     Active Substance: OMEGA-3 FATTY ACIDS
  13. LARTRUVO [Suspect]
     Active Substance: OLARATUMAB
     Indication: MYXOID LIPOSARCOMA
     Dosage: ?          OTHER FREQUENCY:2 TIMES/ 3WEEK CYC;OTHER ROUTE:INFUSION WITH POWER PORT?
     Dates: start: 20180301, end: 20180301
  14. ELMA [Concomitant]
  15. ATIVAN [Concomitant]
     Active Substance: LORAZEPAM
  16. ALOXI [Concomitant]
     Active Substance: PALONOSETRON HYDROCHLORIDE
  17. ZEAXANTHIN [Concomitant]
     Active Substance: ZEAXANTHIN
  18. DECADRON [Concomitant]
     Active Substance: DEXAMETHASONE
  19. DEXAMETHASONE. [Concomitant]
     Active Substance: DEXAMETHASONE
  20. NS INFUSION [Concomitant]
  21. NEULASTA [Concomitant]
     Active Substance: PEGFILGRASTIM
  22. EMEND [Concomitant]
     Active Substance: APREPITANT
  23. PALONSETRON [Concomitant]
  24. DOCOSAHEXAENOIC ACID [Concomitant]
     Active Substance: DOCONEXENT
  25. LUTEIN [Concomitant]
     Active Substance: LUTEIN
  26. SELENIUM [Concomitant]
     Active Substance: SELENIUM

REACTIONS (4)
  - Blood pressure decreased [None]
  - Heart rate decreased [None]
  - Feeling abnormal [None]
  - Visual impairment [None]

NARRATIVE: CASE EVENT DATE: 20180301
